FAERS Safety Report 17791609 (Version 1)
Quarter: 2020Q2

REPORT INFORMATION
  Report Type: Spontaneous
  Country: CA (occurrence: CA)
  Receive Date: 20200515
  Receipt Date: 20200515
  Transmission Date: 20200714
  Serious: Yes (Other)
  Sender: FDA-Public Use
  Company Number: CA-TEVA-2020-CA-1234251

PATIENT
  Age: 4 Year
  Sex: Female
  Weight: 17 kg

DRUGS (20)
  1. METHYLPREDNISOLONE. [Concomitant]
     Active Substance: METHYLPREDNISOLONE
     Route: 065
  2. HYDROCORTISONE. [Concomitant]
     Active Substance: HYDROCORTISONE
     Route: 065
  3. DOXORUBICIN HYDROCHLORIDE. [Suspect]
     Active Substance: DOXORUBICIN HYDROCHLORIDE
     Indication: LEUKAEMIA
     Route: 042
  4. CYTARABINE. [Concomitant]
     Active Substance: CYTARABINE
     Route: 037
  5. HYDROCORTISONE. [Concomitant]
     Active Substance: HYDROCORTISONE
     Route: 065
  6. HYDROCORTISONE. [Concomitant]
     Active Substance: HYDROCORTISONE
     Route: 065
  7. PEG-L-ASPARAGINASE [Concomitant]
     Active Substance: PEGASPARGASE
     Route: 065
  8. PREDNISONE. [Suspect]
     Active Substance: PREDNISONE
     Indication: LEUKAEMIA
     Dosage: 30 MILLIGRAM DAILY;
     Route: 048
  9. METHYLPREDNISOLONE. [Concomitant]
     Active Substance: METHYLPREDNISOLONE
     Route: 065
  10. METHOTREXATE. [Concomitant]
     Active Substance: METHOTREXATE
     Route: 065
  11. VINCRISTINE SULFATE. [Concomitant]
     Active Substance: VINCRISTINE SULFATE
     Route: 065
  12. DEXAMETHASONE. [Concomitant]
     Active Substance: DEXAMETHASONE
     Route: 065
  13. VINCRISTINE SULFATE. [Concomitant]
     Active Substance: VINCRISTINE SULFATE
     Route: 065
  14. CYTARABINE. [Concomitant]
     Active Substance: CYTARABINE
     Route: 065
  15. PEG-L-ASPARAGINASE [Concomitant]
     Active Substance: PEGASPARGASE
     Route: 065
  16. MERCAPTOPURINE. [Concomitant]
     Active Substance: MERCAPTOPURINE
  17. METHOTREXATE. [Concomitant]
     Active Substance: METHOTREXATE
     Route: 013
  18. ASPARAGINASE [Concomitant]
     Active Substance: ASPARAGINASE
     Route: 065
  19. ASPARAGINASE [Concomitant]
     Active Substance: ASPARAGINASE
     Route: 065
  20. DEXAMETHASONE. [Concomitant]
     Active Substance: DEXAMETHASONE
     Route: 065

REACTIONS (1)
  - Cardiotoxicity [Unknown]
